FAERS Safety Report 13008278 (Version 1)
Quarter: 2016Q4

REPORT INFORMATION
  Report Type: Spontaneous
  Country: DE (occurrence: DE)
  Receive Date: 20161208
  Receipt Date: 20161208
  Transmission Date: 20170207
  Serious: Yes (Life-Threatening, Hospitalization)
  Sender: FDA-Public Use
  Company Number: DE-AUROBINDO-AUR-APL-2016-15008

PATIENT
  Age: 73 Year
  Sex: Female
  Weight: 68 kg

DRUGS (6)
  1. PANTOPRAZOLE [Suspect]
     Active Substance: PANTOPRAZOLE SODIUM
     Indication: GASTRITIS
     Dosage: 20 MG, UNK
     Route: 048
     Dates: start: 2010, end: 2010
  2. L-THYROXIN [Concomitant]
     Active Substance: LEVOTHYROXINE SODIUM
     Indication: GOITRE
     Dosage: 20 MG, DAILY
     Route: 048
     Dates: start: 2014
  3. PANTOPRAZOLE [Suspect]
     Active Substance: PANTOPRAZOLE SODIUM
     Dosage: 40 MG, UNK
     Route: 048
     Dates: start: 2010, end: 20161025
  4. VALSARTAN. [Concomitant]
     Active Substance: VALSARTAN
     Indication: HYPERTENSION
     Dosage: 160 MG, DAILY
     Route: 048
     Dates: end: 20161012
  5. METOPROLOL. [Concomitant]
     Active Substance: METOPROLOL
     Indication: HYPERTENSION
     Dosage: 95 MG, DAILY
     Route: 048
     Dates: start: 2012
  6. CINNARIZINE W/DIMENHYDRINATE [Concomitant]
     Indication: DIZZINESS
     Dosage: 20/40 MG
     Route: 048
     Dates: start: 201605

REACTIONS (8)
  - Urinary tract infection [Recovering/Resolving]
  - Sepsis [Recovering/Resolving]
  - Neutrophil function disorder [Recovering/Resolving]
  - Pyrexia [Recovering/Resolving]
  - Liver abscess [Recovering/Resolving]
  - Immunosuppression [Recovering/Resolving]
  - Flank pain [Recovering/Resolving]
  - Fatigue [Recovering/Resolving]

NARRATIVE: CASE EVENT DATE: 201604
